FAERS Safety Report 6127347-5 (Version None)
Quarter: 2009Q1

REPORT INFORMATION
  Report Type: 
  Country: None (occurrence: None)
  Receive Date: 20090319
  Receipt Date: 20090304
  Transmission Date: 20090719
  Serious: Yes (Other)
  Sender: FDA-Public Use
  Company Number: 2009EN000047

PATIENT
  Age: 13 Year
  Sex: Female
  Weight: 80 kg

DRUGS (6)
  1. ONCASPAR [Suspect]
     Dosage: 4750 IU;X1;IV
     Route: 042
     Dates: start: 20090202, end: 20090202
  2. PREDNISONE [Suspect]
     Indication: ACUTE LYMPHOCYTIC LEUKAEMIA
     Dosage: 3360 MG;BID;PO
     Route: 048
     Dates: start: 20090130
  3. CYTARABINE [Concomitant]
  4. DAUNORUBICIN HCL [Concomitant]
  5. METHOTREXATE [Concomitant]
  6. VINCRISTINE [Concomitant]

REACTIONS (5)
  - HYPERCHOLESTEROLAEMIA [None]
  - HYPERGLYCAEMIA [None]
  - HYPERTRIGLYCERIDAEMIA [None]
  - HYPOGLYCAEMIA [None]
  - LABORATORY TEST ABNORMAL [None]
